FAERS Safety Report 5324094-4 (Version None)
Quarter: 2007Q2

REPORT INFORMATION
  Report Type: 
  Country: None (occurrence: None)
  Receive Date: 20070514
  Receipt Date: 20060412
  Transmission Date: 20071010
  Serious: No
  Sender: FDA-Public Use
  Company Number: A0601598A

PATIENT
  Age: 49 Year
  Sex: Female

DRUGS (5)
  1. NABUMETONE [Suspect]
     Indication: RHEUMATOID ARTHRITIS
     Dosage: 1000MG TWICE PER DAY
     Route: 048
     Dates: start: 20040101, end: 20040101
  2. RELAFEN [Suspect]
     Indication: RHEUMATOID ARTHRITIS
     Dosage: 1000MG TWICE PER DAY
     Route: 048
     Dates: start: 19920101
  3. PREDNISONE TAB [Concomitant]
  4. ATENOLOL [Concomitant]
  5. FOSAMAX [Concomitant]

REACTIONS (2)
  - ABDOMINAL PAIN UPPER [None]
  - TINNITUS [None]
